FAERS Safety Report 23202668 (Version 1)
Quarter: 2023Q4

REPORT INFORMATION
  Report Type: Spontaneous
  Country: US (occurrence: US)
  Receive Date: 20231120
  Receipt Date: 20231120
  Transmission Date: 20240110
  Serious: Yes (Death, Life-Threatening, Other)
  Sender: FDA-Public Use
  Company Number: US-ALEMBIC PHARMACUETICALS LIMITED-2023SCAL001097

PATIENT

DRUGS (2)
  1. LAMOTRIGINE [Suspect]
     Active Substance: LAMOTRIGINE
     Indication: Epilepsy
     Dosage: 75 MG
     Route: 065
  2. LAMOTRIGINE [Suspect]
     Active Substance: LAMOTRIGINE
     Dosage: 100 MG
     Route: 065

REACTIONS (33)
  - Pulmonary oedema [Fatal]
  - Cardiac arrest [Fatal]
  - Hepatic necrosis [Fatal]
  - Ventricular fibrillation [Fatal]
  - Effusion [Fatal]
  - Thyroiditis [Fatal]
  - Cholangitis acute [Fatal]
  - Fall [Fatal]
  - Large intestinal haemorrhage [Fatal]
  - Drug reaction with eosinophilia and systemic symptoms [Fatal]
  - Eosinophilic myocarditis [Fatal]
  - Cardiac failure [Fatal]
  - Rash [Fatal]
  - Rash maculo-papular [Fatal]
  - Lymphadenopathy [Fatal]
  - Alanine aminotransferase increased [Fatal]
  - Aspartate aminotransferase increased [Fatal]
  - Leukocytosis [Fatal]
  - Eosinophilia [Fatal]
  - Malaise [Fatal]
  - Chills [Fatal]
  - Pyrexia [Fatal]
  - Nausea [Fatal]
  - Vomiting [Fatal]
  - Abdominal pain upper [Fatal]
  - Dyspnoea [Fatal]
  - Neutrophilia [Fatal]
  - Electrolyte imbalance [Fatal]
  - Hypoalbuminaemia [Fatal]
  - Hyponatraemia [Fatal]
  - Rash erythematous [Fatal]
  - Hepatic function abnormal [Fatal]
  - Abdominal tenderness [Fatal]
